FAERS Safety Report 7505792-0 (Version None)
Quarter: 2011Q2

REPORT INFORMATION
  Report Type: 
  Country: None (occurrence: None)
  Receive Date: 20110407
  Receipt Date: 20100720
  Transmission Date: 20111010
  Serious: Yes (Other)
  Sender: FDA-Public Use
  Company Number: 2010BH019426

PATIENT
  Age: 52 Year
  Sex: Female
  Weight: 72.5755 kg

DRUGS (37)
  1. REGLAN [Suspect]
     Indication: PROPHYLAXIS
     Dosage: IV
     Route: 042
     Dates: start: 20060818, end: 20060821
  2. REGLAN [Suspect]
     Indication: GASTROOESOPHAGEAL REFLUX DISEASE
     Dosage: IV
     Route: 042
     Dates: start: 20060818, end: 20060821
  3. REGLAN [Suspect]
     Indication: NAUSEA
     Dosage: IV
     Route: 042
     Dates: start: 20060818, end: 20060821
  4. REGLAN [Suspect]
     Indication: HIATUS HERNIA
     Dosage: IV
     Route: 042
     Dates: start: 20060818, end: 20060821
  5. REGLAN [Suspect]
     Indication: OESOPHAGITIS
     Dosage: IV
     Route: 042
     Dates: start: 20060818, end: 20060821
  6. ARIPIPRAZOLE [Concomitant]
  7. TRICYCLIC ANTIDEPRESSANTS [Concomitant]
  8. PROMETHAZINE [Concomitant]
  9. DIPHENHYDRAMINE HCL [Concomitant]
  10. COQ10 [Concomitant]
  11. REGLAN [Suspect]
     Indication: GASTROOESOPHAGEAL REFLUX DISEASE
     Dosage: PO, PO, PO
     Route: 048
     Dates: start: 20060813, end: 20060828
  12. REGLAN [Suspect]
     Indication: NAUSEA
     Dosage: PO, PO, PO
     Route: 048
     Dates: start: 20060813, end: 20060828
  13. REGLAN [Suspect]
     Indication: OESOPHAGITIS
     Dosage: PO, PO, PO
     Route: 048
     Dates: start: 20060813, end: 20060828
  14. REGLAN [Suspect]
     Indication: HIATUS HERNIA
     Dosage: PO, PO, PO
     Route: 048
     Dates: start: 20060813, end: 20060828
  15. REGLAN [Suspect]
     Indication: PROPHYLAXIS
     Dosage: PO, PO, PO
     Route: 048
     Dates: start: 20060813, end: 20060828
  16. REGLAN [Suspect]
     Indication: GASTROOESOPHAGEAL REFLUX DISEASE
     Dosage: PO, PO, PO
     Route: 048
     Dates: start: 20060827, end: 20060828
  17. REGLAN [Suspect]
     Indication: NAUSEA
     Dosage: PO, PO, PO
     Route: 048
     Dates: start: 20060827, end: 20060828
  18. REGLAN [Suspect]
     Indication: OESOPHAGITIS
     Dosage: PO, PO, PO
     Route: 048
     Dates: start: 20060827, end: 20060828
  19. REGLAN [Suspect]
     Indication: HIATUS HERNIA
     Dosage: PO, PO, PO
     Route: 048
     Dates: start: 20060827, end: 20060828
  20. REGLAN [Suspect]
     Indication: PROPHYLAXIS
     Dosage: PO, PO, PO
     Route: 048
     Dates: start: 20060827, end: 20060828
  21. REGLAN [Suspect]
     Indication: GASTROOESOPHAGEAL REFLUX DISEASE
     Dosage: PO, PO, PO
     Route: 048
     Dates: start: 20041228, end: 20070516
  22. REGLAN [Suspect]
     Indication: NAUSEA
     Dosage: PO, PO, PO
     Route: 048
     Dates: start: 20041228, end: 20070516
  23. REGLAN [Suspect]
     Indication: OESOPHAGITIS
     Dosage: PO, PO, PO
     Route: 048
     Dates: start: 20041228, end: 20070516
  24. REGLAN [Suspect]
     Indication: HIATUS HERNIA
     Dosage: PO, PO, PO
     Route: 048
     Dates: start: 20041228, end: 20070516
  25. REGLAN [Suspect]
     Indication: PROPHYLAXIS
     Dosage: PO, PO, PO
     Route: 048
     Dates: start: 20041228, end: 20070516
  26. PROMETHAZINE [Concomitant]
  27. VITAMIN D [Concomitant]
  28. MULTI-VITAMINS [Concomitant]
  29. PERPHENAZINE [Concomitant]
  30. PROCHLORPERAZINE TAB [Concomitant]
  31. CALCIUM CARBONATE [Concomitant]
  32. AMITRIPTYLINE HYDROCHLORIDE [Concomitant]
  33. OTHER ANTIDEPRESSANTS [Concomitant]
  34. TRANQUILIZERS [Concomitant]
  35. LORAZEPAM [Concomitant]
  36. PROCHLORPERAZINE TAB [Concomitant]
  37. SERTRALINE HYDROCHLORIDE [Concomitant]

REACTIONS (1)
  - TARDIVE DYSKINESIA [None]
